FAERS Safety Report 12353558 (Version 1)
Quarter: 2016Q2

REPORT INFORMATION
  Report Type: Spontaneous
  Country: DK (occurrence: DK)
  Receive Date: 20160511
  Receipt Date: 20160511
  Transmission Date: 20160815
  Serious: Yes (Death, Hospitalization)
  Sender: FDA-Public Use
  Company Number: DK-HOSPIRA-3274859

PATIENT
  Age: 60 Year
  Sex: Female

DRUGS (10)
  1. PANTOPRAZOLE SODIUM. [Concomitant]
     Active Substance: PANTOPRAZOLE SODIUM
     Indication: PRODUCT USED FOR UNKNOWN INDICATION
     Dates: start: 20160310
  2. KALEORID [Concomitant]
     Active Substance: POTASSIUM CHLORIDE
     Indication: PRODUCT USED FOR UNKNOWN INDICATION
  3. FURIX [Concomitant]
     Active Substance: FUROSEMIDE
     Indication: DIURETIC THERAPY
     Dates: start: 201602
  4. CIPROFLOXACIN FRESENIUS KABI /00697203/ [Suspect]
     Active Substance: CIPROFLOXACIN
     Indication: UROSEPSIS
     Dosage: 2 MG/ML
     Route: 042
     Dates: start: 20160318, end: 20160401
  5. FLUCONAZOL HEXAL [Suspect]
     Active Substance: FLUCONAZOLE
     Indication: FUNGAL INFECTION
     Dosage: 100 MG
     Route: 048
     Dates: start: 20160329, end: 20160401
  6. VANCOMYCINE FRESENIUS KABI [Suspect]
     Active Substance: VANCOMYCIN
     Indication: UROSEPSIS
     Dosage: 1 G
     Dates: start: 20160326, end: 20160329
  7. B-COMBIN                           /00003501/ [Concomitant]
     Indication: PRODUCT USED FOR UNKNOWN INDICATION
  8. SPIRON                             /00577002/ [Concomitant]
     Indication: PRODUCT USED FOR UNKNOWN INDICATION
     Dates: start: 20160324
  9. MEROPENEM HOSPIRA [Suspect]
     Active Substance: MEROPENEM
     Indication: UROSEPSIS
     Route: 042
     Dates: start: 20160320, end: 20160329
  10. THIAMIN [Concomitant]
     Active Substance: THIAMINE
     Indication: PRODUCT USED FOR UNKNOWN INDICATION

REACTIONS (11)
  - Cardiovascular insufficiency [Fatal]
  - Blister [Not Recovered/Not Resolved]
  - Dialysis [Not Recovered/Not Resolved]
  - Renal failure [Fatal]
  - Toxic epidermal necrolysis [Fatal]
  - Rash pruritic [Not Recovered/Not Resolved]
  - Hepatic failure [Fatal]
  - Fluid overload [Not Recovered/Not Resolved]
  - Endotracheal intubation [Not Recovered/Not Resolved]
  - Acidosis [Not Recovered/Not Resolved]
  - Hypotension [Not Recovered/Not Resolved]

NARRATIVE: CASE EVENT DATE: 20160326
